FAERS Safety Report 14830289 (Version 1)
Quarter: 2018Q2

REPORT INFORMATION
  Report Type: Spontaneous
  Country: US (occurrence: US)
  Receive Date: 20180430
  Receipt Date: 20180430
  Transmission Date: 20180711
  Serious: No
  Sender: FDA-Public Use
  Company Number: US-SA-2018SA019958

PATIENT
  Age: 77 Year
  Sex: Male

DRUGS (3)
  1. ALIROCUMAB PREFILLED PEN [Suspect]
     Active Substance: ALIROCUMAB
     Dates: start: 201711
  2. PRALUENT [Suspect]
     Active Substance: ALIROCUMAB
     Route: 058
     Dates: start: 201711
  3. CILOSTAZOL. [Concomitant]
     Active Substance: CILOSTAZOL

REACTIONS (1)
  - Rash [Unknown]

NARRATIVE: CASE EVENT DATE: 20171222
